FAERS Safety Report 8394747 (Version 2)
Quarter: 2015Q3

REPORT INFORMATION
  Report Type: Spontaneous
  Country: US (occurrence: US)
  Receive Date: 20120207
  Receipt Date: 20150825
  Transmission Date: 20151125
  Serious: Yes (Other)
  Sender: FDA-Public Use
  Company Number: US-ROCHE-1035137

PATIENT
  Age: 67 Year
  Sex: Female

DRUGS (9)
  1. BONIVA [Suspect]
     Active Substance: IBANDRONATE SODIUM
     Indication: OSTEOPOROSIS
     Route: 065
     Dates: start: 20040923, end: 200506
  2. BONIVA [Suspect]
     Active Substance: IBANDRONATE SODIUM
     Route: 065
     Dates: start: 200506, end: 20100216
  3. FOSAMAX [Suspect]
     Active Substance: ALENDRONATE SODIUM
     Route: 065
     Dates: start: 20000425, end: 20040923
  4. CRESTOR [Concomitant]
     Active Substance: ROSUVASTATIN CALCIUM
     Route: 065
     Dates: start: 201011
  5. ZOCOR [Concomitant]
     Active Substance: SIMVASTATIN
     Route: 065
     Dates: start: 2007, end: 2010
  6. RAMIPRIL. [Concomitant]
     Active Substance: RAMIPRIL
     Route: 065
     Dates: start: 200710
  7. ACTOS [Concomitant]
     Active Substance: PIOGLITAZONE HYDROCHLORIDE
     Dosage: APPROX 2 YEARS
     Route: 065
  8. SYNTHROID [Concomitant]
     Active Substance: LEVOTHYROXINE SODIUM
     Route: 065
     Dates: start: 200612
  9. FOSAMAX [Suspect]
     Active Substance: ALENDRONATE SODIUM
     Indication: OSTEOPOROSIS
     Route: 065
     Dates: start: 19980401, end: 20000425

REACTIONS (5)
  - Femur fracture [Unknown]
  - Emotional distress [Unknown]
  - Low turnover osteopathy [Unknown]
  - Anxiety [Unknown]
  - Stress fracture [Unknown]

NARRATIVE: CASE EVENT DATE: 200903
